FAERS Safety Report 9215984 (Version 3)
Quarter: 2013Q2

REPORT INFORMATION
  Report Type: Spontaneous
  Country: US (occurrence: US)
  Receive Date: 20130408
  Receipt Date: 20130524
  Transmission Date: 20140414
  Serious: Yes (Disabling, Other)
  Sender: FDA-Public Use
  Company Number: US-JNJFOC-20130402264

PATIENT
  Age: 52 Year
  Sex: Male

DRUGS (3)
  1. STELARA [Suspect]
     Indication: PSORIASIS
     Route: 058
     Dates: end: 20121026
  2. STELARA [Suspect]
     Indication: PSORIASIS
     Route: 058
     Dates: start: 20110909
  3. STEROIDS NOS [Concomitant]
     Route: 061

REACTIONS (3)
  - Osteomyelitis [Unknown]
  - Blister infected [Recovered/Resolved]
  - Blister [Unknown]
